FAERS Safety Report 11093296 (Version 3)
Quarter: 2015Q2

REPORT INFORMATION
  Report Type: Spontaneous
  Country: JP (occurrence: JP)
  Receive Date: 20150506
  Receipt Date: 20150513
  Transmission Date: 20150821
  Serious: Yes (Other)
  Sender: FDA-Public Use
  Company Number: JP-PFIZER INC-2015124935

PATIENT
  Age: 70 Year
  Sex: Female

DRUGS (2)
  1. NEUROTROPIN TAB 4NU [Concomitant]
     Indication: TRIGEMINAL NEURALGIA
     Route: 048
  2. LYRICA [Suspect]
     Active Substance: PREGABALIN
     Indication: TRIGEMINAL NEURALGIA
     Dosage: 50 MG, DAILY
     Route: 048

REACTIONS (3)
  - Dizziness [Recovered/Resolved]
  - Trigeminal neuralgia [Recovered/Resolved]
  - Somnolence [Recovered/Resolved]
